FAERS Safety Report 8478899 (Version 4)
Quarter: 2012Q4

REPORT INFORMATION
  Report Type: 
  Country: US (occurrence: US)
  Receive Date: 20120112
  Receipt Date: 20121204
  Transmission Date: 20130627
  Serious: Yes (Other)
  Sender: FDA-Public Use
  Company Number: US-JNJFOC-20120103823

PATIENT
  Age: 4 Year
  Sex: Male

DRUGS (2)
  1. CHILDREN^S ZYRTEC [Suspect]
     Route: 048
  2. CHILDREN^S ZYRTEC [Suspect]
     Indication: SEASONAL ALLERGY
     Route: 048
     Dates: start: 20051228, end: 20111119

REACTIONS (1)
  - Tourette^s disorder [Recovering/Resolving]
